FAERS Safety Report 5081858-2 (Version None)
Quarter: 2006Q3

REPORT INFORMATION
  Report Type: 
  Country: None (occurrence: None)
  Receive Date: 20060816
  Receipt Date: 20060808
  Transmission Date: 20061208
  Serious: Yes (Other)
  Sender: FDA-Public Use
  Company Number: US-JNJFOC-20060500718

PATIENT
  Sex: Female

DRUGS (2)
  1. REMICADE [Suspect]
     Indication: TRANSMISSION OF DRUG VIA SEMEN
     Route: 042
  2. IMURAN [Concomitant]

REACTIONS (4)
  - CAESAREAN SECTION [None]
  - DRUG EXPOSURE DURING PREGNANCY [None]
  - PREGNANCY INDUCED HYPERTENSION [None]
  - TRANSMISSION OF DRUG VIA SEMEN [None]
